FAERS Safety Report 7222974-6 (Version None)
Quarter: 2011Q1

REPORT INFORMATION
  Report Type: 
  Country: None (occurrence: None)
  Receive Date: 20110112
  Receipt Date: 20110110
  Transmission Date: 20110831
  Serious: Yes (Other)
  Sender: FDA-Public Use
  Company Number: US-AMGEN-USASP2011001444

PATIENT

DRUGS (1)
  1. ENBREL [Suspect]
     Indication: RHEUMATOID ARTHRITIS
     Dosage: 50 MG, QWK
     Dates: start: 20050120

REACTIONS (6)
  - ALOPECIA [None]
  - PLATELET COUNT DECREASED [None]
  - BONE MARROW FAILURE [None]
  - NASOPHARYNGITIS [None]
  - FATIGUE [None]
  - APHONIA [None]
